FAERS Safety Report 16608823 (Version 1)
Quarter: 2019Q3

REPORT INFORMATION
  Report Type: Spontaneous
  Country: US (occurrence: US)
  Receive Date: 20190719
  Receipt Date: 20190719
  Transmission Date: 20191004
  Serious: Yes (Hospitalization)
  Sender: FDA-Public Use
  Company Number: None

PATIENT
  Sex: Female

DRUGS (12)
  1. PREDNISONE. [Concomitant]
     Active Substance: PREDNISONE
  2. AZITHROMYCIN ANHYDROUS. [Concomitant]
     Active Substance: AZITHROMYCIN ANHYDROUS
  3. DICLOFENAC [Concomitant]
     Active Substance: DICLOFENAC
  4. METHOTREXATE. [Concomitant]
     Active Substance: METHOTREXATE
  5. ORENCIA [Suspect]
     Active Substance: ABATACEPT
     Indication: RHEUMATOID ARTHRITIS
     Dosage: ?          OTHER FREQUENCY:WEEKLY;?
     Route: 058
     Dates: start: 20190619
  6. ONDANESTRON [Concomitant]
  7. METHYLPRED [Concomitant]
     Active Substance: METHYLPREDNISOLONE
  8. MUPIROCIN. [Concomitant]
     Active Substance: MUPIROCIN
  9. VALACYCLOVIR [Concomitant]
     Active Substance: VALACYCLOVIR HYDROCHLORIDE
  10. FOLIC ACID. [Concomitant]
     Active Substance: FOLIC ACID
  11. MECLIZINE [Concomitant]
     Active Substance: MECLIZINE HYDROCHLORIDE
  12. RANITIDINE. [Concomitant]
     Active Substance: RANITIDINE

REACTIONS (1)
  - Kidney infection [None]
